FAERS Safety Report 6013803-7 (Version None)
Quarter: 2008Q4

REPORT INFORMATION
  Report Type: 
  Country: None (occurrence: None)
  Receive Date: 20081219
  Receipt Date: 20081204
  Transmission Date: 20090506
  Serious: Yes (Other)
  Sender: FDA-Public Use
  Company Number: BR-PFIZER INC-2008153904

PATIENT

DRUGS (1)
  1. CHAMPIX [Suspect]
     Indication: SMOKING CESSATION THERAPY
     Dosage: UNK
     Route: 048
     Dates: start: 20081101, end: 20081128

REACTIONS (12)
  - ABDOMINAL DISCOMFORT [None]
  - ABDOMINAL PAIN UPPER [None]
  - BLOOD PRESSURE INCREASED [None]
  - DYSPEPSIA [None]
  - HEPATIC LESION [None]
  - IRRITABILITY [None]
  - LABYRINTHITIS [None]
  - LAZINESS [None]
  - MALAISE [None]
  - SENSORY DISTURBANCE [None]
  - VERTIGO [None]
  - VISUAL IMPAIRMENT [None]
